FAERS Safety Report 11052482 (Version 1)
Quarter: 2015Q2

REPORT INFORMATION
  Report Type: Spontaneous
  Country: None (occurrence: None)
  Receive Date: 20150420
  Receipt Date: 20150420
  Transmission Date: 20150821
  Serious: Yes (Hospitalization)
  Sender: FDA-Public Use
  Company Number: None

PATIENT
  Age: 68 Year
  Sex: Male
  Weight: 68 kg

DRUGS (9)
  1. OXYMORPHONE [Concomitant]
     Active Substance: OXYMORPHONE
  2. GLIPIZIDE. [Concomitant]
     Active Substance: GLIPIZIDE
  3. HYDROMORPHONE [Concomitant]
     Active Substance: HYDROMORPHONE
  4. BACTRIM DS [Suspect]
     Active Substance: SULFAMETHOXAZOLE\TRIMETHOPRIM
     Indication: URINARY TRACT INFECTION
     Dosage: 1 TABLET
     Route: 048
  5. LIPITOR [Concomitant]
     Active Substance: ATORVASTATIN CALCIUM
  6. OMEPRAZOLE. [Concomitant]
     Active Substance: OMEPRAZOLE
  7. LYRICA [Concomitant]
     Active Substance: PREGABALIN
  8. ASPIRIN. [Concomitant]
     Active Substance: ASPIRIN
  9. LIBRAX [Concomitant]
     Active Substance: CHLORDIAZEPOXIDE HYDROCHLORIDE\CLIDINIUM BROMIDE

REACTIONS (1)
  - Acute kidney injury [None]

NARRATIVE: CASE EVENT DATE: 20150416
